FAERS Safety Report 13627854 (Version 1)
Quarter: 2017Q2

REPORT INFORMATION
  Report Type: Spontaneous
  Country: US (occurrence: US)
  Receive Date: 20170608
  Receipt Date: 20170608
  Transmission Date: 20170830
  Serious: No
  Sender: FDA-Public Use
  Company Number: US-PERRIGO-16US019610

PATIENT
  Age: 34 Year
  Sex: Male
  Weight: 79.37 kg

DRUGS (2)
  1. MINOXIDIL. [Suspect]
     Active Substance: MINOXIDIL
     Indication: ALOPECIA
     Dosage: 1/2 CAPFUL, BID
     Route: 061
     Dates: start: 201601, end: 20160825
  2. MINOXIDIL. [Suspect]
     Active Substance: MINOXIDIL
     Dosage: 1/2 CAPFUL, SINGLE
     Route: 061
     Dates: start: 20160826, end: 20160826

REACTIONS (5)
  - Application site discharge [Recovered/Resolved]
  - Application site exfoliation [Not Recovered/Not Resolved]
  - Application site pain [Recovered/Resolved]
  - Application site vesicles [Recovered/Resolved]
  - Application site scab [Not Recovered/Not Resolved]

NARRATIVE: CASE EVENT DATE: 20160826
